FAERS Safety Report 6984882-5 (Version None)
Quarter: 2010Q3

REPORT INFORMATION
  Report Type: 
  Country: None (occurrence: None)
  Receive Date: 20100915
  Receipt Date: 20100907
  Transmission Date: 20110219
  Serious: Yes (Other)
  Sender: FDA-Public Use
  Company Number: US-SANOFI-AVENTIS-2010SA054344

PATIENT
  Age: 66 Year
  Sex: Female
  Weight: 51.26 kg

DRUGS (1)
  1. MULTAQ [Suspect]
     Indication: ATRIAL FIBRILLATION
     Route: 048
     Dates: start: 20100201, end: 20100831

REACTIONS (4)
  - AGEUSIA [None]
  - ASTHENIA [None]
  - RASH GENERALISED [None]
  - WEIGHT DECREASED [None]
